FAERS Safety Report 25149197 (Version 4)
Quarter: 2025Q2

REPORT INFORMATION
  Report Type: Spontaneous
  Country: US (occurrence: US)
  Receive Date: 20250402
  Receipt Date: 20250506
  Transmission Date: 20250716
  Serious: No
  Sender: BIOGEN
  Company Number: US-BIOGEN-2025BI01306195

PATIENT
  Sex: Male

DRUGS (4)
  1. VUMERITY [Suspect]
     Active Substance: DIROXIMEL FUMARATE
     Indication: Multiple sclerosis
     Dosage: FOR 7 DAYS
     Route: 050
     Dates: start: 20250224
  2. VUMERITY [Suspect]
     Active Substance: DIROXIMEL FUMARATE
     Route: 050
  3. PREDNISONE [Concomitant]
     Active Substance: PREDNISONE
     Route: 050
  4. MINOXIDIL [Concomitant]
     Active Substance: MINOXIDIL
     Route: 050

REACTIONS (3)
  - Constipation [Recovered/Resolved]
  - Rash [Recovered/Resolved]
  - Gastrointestinal disorder [Unknown]
